FAERS Safety Report 9166836 (Version 1)
Quarter: 2012Q4

REPORT INFORMATION
  Report Type: 
  Country: US (occurrence: US)
  Receive Date: 20121031
  Receipt Date: 20121031
  Transmission Date: 20130627
  Serious: Yes (Death, Other)
  Sender: FDA-Public Use
  Company Number: US-RB-046125-12

PATIENT
  Sex: Female

DRUGS (3)
  1. SUBOXONE TABLETS [Suspect]
     Indication: DRUG DEPENDENCE
     Route: 064
     Dates: start: 201103, end: 201106
  2. GENERIC BUPRENORPHINE [Suspect]
     Indication: DRUG DEPENDENCE
     Route: 064
     Dates: start: 201106, end: 20111223
  3. PRENATAL VITAMINS [Concomitant]
     Indication: PREGNANCY
     Dosage: Dosing details unknown
     Route: 064
     Dates: end: 20111223

REACTIONS (2)
  - Sudden infant death syndrome [Fatal]
  - Foetal exposure during pregnancy [Recovered/Resolved]
